FAERS Safety Report 14416753 (Version 1)
Quarter: 2018Q1

REPORT INFORMATION
  Report Type: Spontaneous
  Country: US (occurrence: US)
  Receive Date: 20180119
  Receipt Date: 20180119
  Transmission Date: 20180509
  Serious: Yes (Hospitalization)
  Sender: FDA-Public Use
  Company Number: None

PATIENT
  Age: 36 Year
  Sex: Male

DRUGS (16)
  1. LIDOCAINE. [Concomitant]
     Active Substance: LIDOCAINE
  2. MEROPENEM. [Suspect]
     Active Substance: MEROPENEM
     Indication: INFECTION
     Route: 042
     Dates: start: 20170914, end: 20170921
  3. HYDROMORPHONE [Concomitant]
     Active Substance: HYDROMORPHONE
  4. LOPERAMIDE [Concomitant]
     Active Substance: LOPERAMIDE
  5. SERTRALINE [Concomitant]
     Active Substance: SERTRALINE HYDROCHLORIDE
  6. TRAZODONE [Concomitant]
     Active Substance: TRAZODONE HYDROCHLORIDE
  7. CARVEDILOL. [Concomitant]
     Active Substance: CARVEDILOL
  8. MULTIVITAMIN [Concomitant]
     Active Substance: VITAMINS
  9. ACETAMINOPHEN. [Concomitant]
     Active Substance: ACETAMINOPHEN
  10. CETIRIZINE [Concomitant]
     Active Substance: CETIRIZINE HYDROCHLORIDE
  11. ABACAVIR. [Concomitant]
     Active Substance: ABACAVIR
  12. ALBUTEROL. [Concomitant]
     Active Substance: ALBUTEROL
  13. DIPHENHYDRAMINE. [Concomitant]
     Active Substance: DIPHENHYDRAMINE
  14. INSULIN REG/NPH 70/30 [Concomitant]
     Active Substance: INSULIN HUMAN
  15. IPRATROPIUM [Concomitant]
     Active Substance: IPRATROPIUM
  16. LANSOPRAZOLE. [Concomitant]
     Active Substance: LANSOPRAZOLE

REACTIONS (6)
  - Deep vein thrombosis [None]
  - Device related thrombosis [None]
  - Rash maculo-papular [None]
  - Urinary tract infection bacterial [None]
  - Therapy non-responder [None]
  - Tubulointerstitial nephritis [None]

NARRATIVE: CASE EVENT DATE: 20170921
